FAERS Safety Report 22197086 (Version 2)
Quarter: 2024Q2

REPORT INFORMATION
  Report Type: Report from Study
  Country: US (occurrence: US)
  Receive Date: 20230411
  Receipt Date: 20240506
  Transmission Date: 20240715
  Serious: Yes (Hospitalization, Other)
  Sender: FDA-Public Use
  Company Number: US-ABBVIE-4723578

PATIENT
  Sex: Female

DRUGS (2)
  1. SKYRIZI [Suspect]
     Active Substance: RISANKIZUMAB-RZAA
     Indication: Psoriasis
     Dosage: FORM STRENGTH: 150 MG
     Route: 058
     Dates: end: 202402
  2. SKYRIZI [Suspect]
     Active Substance: RISANKIZUMAB-RZAA
     Indication: Psoriatic arthropathy
     Dosage: FORM STRENGTH: 150 MG/ML   FIRST ADMIN DATE 2024
     Route: 058

REACTIONS (8)
  - Sepsis [Unknown]
  - Cardiac failure congestive [Unknown]
  - Chest pain [Unknown]
  - Pain in extremity [Unknown]
  - Blood potassium increased [Unknown]
  - Enzyme level increased [Unknown]
  - Psoriasis [Unknown]
  - Illness [Unknown]

NARRATIVE: CASE EVENT DATE: 20220101
